FAERS Safety Report 8967749 (Version 1)
Quarter: 2012Q4

REPORT INFORMATION
  Report Type: Spontaneous
  Country: US (occurrence: None)
  Receive Date: 20121207
  Receipt Date: 20121207
  Transmission Date: 20130627
  Serious: Yes (Other)
  Sender: FDA-Public Use
  Company Number: 2012-004292

PATIENT
  Sex: Female

DRUGS (6)
  1. ACTONEL [Suspect]
     Dosage: Unknown, Oral
     Dates: start: 2001, end: 200306
  2. ACTONEL [Suspect]
     Dosage: Unknown, Oral
     Dates: start: 2001, end: 200306
  3. FOSAMAX (ALENDRONATE SODIUM) [Suspect]
  4. FOSAMAX (ALENDRONATE SODIUM) [Suspect]
  5. FOSAMAX PLUS D [Suspect]
     Dosage: Unknown, Oral
  6. FOSAMAX PLUS D [Suspect]
     Dosage: Unknown, Oral

REACTIONS (3)
  - Atypical femur fracture [None]
  - Pain in extremity [None]
  - Low turnover osteopathy [None]
